FAERS Safety Report 4728360-2 (Version None)
Quarter: 2005Q3

REPORT INFORMATION
  Report Type: 
  Country: None (occurrence: None)
  Receive Date: 20050727
  Receipt Date: 20050718
  Transmission Date: 20060218
  Serious: Yes (Death, Hospitalization, Other)
  Sender: FDA-Public Use
  Company Number: US-2005-014171

PATIENT
  Age: 47 Year
  Sex: Female

DRUGS (1)
  1. BETASERON [Suspect]
     Indication: MULTIPLE SCLEROSIS
     Dosage: SUBCUTANEOUS
     Route: 058
     Dates: start: 19940310, end: 20041204

REACTIONS (5)
  - CHOKING [None]
  - CONVULSION [None]
  - DIABETES MELLITUS [None]
  - HAEMORRHAGE [None]
  - MULTIPLE SCLEROSIS [None]
